FAERS Safety Report 13250473 (Version 1)
Quarter: 2017Q1

REPORT INFORMATION
  Report Type: Spontaneous
  Country: US (occurrence: US)
  Receive Date: 20170219
  Receipt Date: 20170219
  Transmission Date: 20170428
  Serious: No
  Sender: FDA-Public Use
  Company Number: US-GLENMARK PHARMACEUTICALS-2017GMK025899

PATIENT

DRUGS (6)
  1. POTASSIUM CHLORIDE. [Concomitant]
     Active Substance: POTASSIUM CHLORIDE
     Indication: PRODUCT USED FOR UNKNOWN INDICATION
     Dosage: 40 MEQ, OD
     Route: 048
  2. OMEPRAZOLE. [Suspect]
     Active Substance: OMEPRAZOLE
     Dosage: 40 MG, ONCE DAILY IN THE MORNING BEFORE MEALS
     Route: 048
     Dates: start: 201608, end: 20170111
  3. AMLODIPINE [Concomitant]
     Active Substance: AMLODIPINE BESYLATE
     Indication: HYPERTENSION
     Dosage: 10 MG, OD
     Route: 048
  4. OMEPRAZOLE. [Suspect]
     Active Substance: OMEPRAZOLE
     Indication: PROPHYLAXIS OF NAUSEA AND VOMITING
     Dosage: 40 MG, ONCE DAILY IN THE MORNING BEFORE MEALS
     Route: 048
     Dates: end: 2016
  5. PRAVASTATIN. [Suspect]
     Active Substance: PRAVASTATIN
     Indication: BLOOD CHOLESTEROL INCREASED
     Dosage: 40 MG, OD
     Route: 048
  6. HYDROCHLOROTHIAZIDE. [Concomitant]
     Active Substance: HYDROCHLOROTHIAZIDE
     Indication: HYPERTENSION
     Dosage: UNK
     Route: 065

REACTIONS (3)
  - Product use issue [Unknown]
  - Abdominal pain upper [Recovered/Resolved]
  - Incorrect drug administration duration [Unknown]

NARRATIVE: CASE EVENT DATE: 2016
